FAERS Safety Report 13024923 (Version 3)
Quarter: 2017Q3

REPORT INFORMATION
  Report Type: Report from Study
  Country: US (occurrence: US)
  Receive Date: 20161213
  Receipt Date: 20170707
  Transmission Date: 20171127
  Serious: Yes (Hospitalization, Other)
  Sender: FDA-Public Use
  Company Number: US-SA-2016SA224842

PATIENT
  Age: 60 Year
  Sex: Female

DRUGS (1)
  1. LEMTRADA [Suspect]
     Active Substance: ALEMTUZUMAB
     Indication: MULTIPLE SCLEROSIS
     Route: 041
     Dates: start: 20161017, end: 20161021

REACTIONS (6)
  - Cardiac septal defect [Recovered/Resolved]
  - Staphylococcal infection [Recovered/Resolved]
  - Cardiac infection [Unknown]
  - Drug monitoring procedure not performed [Unknown]
  - Gait inability [Recovered/Resolved]
  - Diarrhoea [Unknown]

NARRATIVE: CASE EVENT DATE: 2016
